FAERS Safety Report 9365399 (Version 2)
Quarter: 2013Q3

REPORT INFORMATION
  Report Type: Report from Study
  Country: US (occurrence: US)
  Receive Date: 20130625
  Receipt Date: 20130805
  Transmission Date: 20140515
  Serious: Yes (Hospitalization)
  Sender: FDA-Public Use
  Company Number: US-ROCHE-1240769

PATIENT
  Age: 59 Year
  Sex: Male
  Weight: 73.28 kg

DRUGS (5)
  1. LUCENTIS [Suspect]
     Indication: DIABETIC RETINAL OEDEMA
     Dosage: LAST RECEIVED DOSES: ^OS 1 MONTH AGO, OD 5 WEEKS^
     Route: 050
     Dates: start: 20130122, end: 20130711
  2. GLUCOPHAGE [Concomitant]
     Route: 065
     Dates: start: 20130114
  3. GLIPIZIDE [Concomitant]
     Route: 065
     Dates: start: 20130114
  4. LANTUS [Concomitant]
     Route: 065
     Dates: start: 20130114
  5. ENALAPRIL [Concomitant]
     Route: 065
     Dates: start: 20130114

REACTIONS (7)
  - Localised infection [Unknown]
  - Cellulitis [Recovered/Resolved]
  - Diabetic eye disease [Unknown]
  - Diabetic retinal oedema [Unknown]
  - Dyspepsia [Unknown]
  - Dizziness [Unknown]
  - Dizziness [Unknown]
